FAERS Safety Report 20029479 (Version 2)
Quarter: 2021Q4

REPORT INFORMATION
  Report Type: Spontaneous
  Country: JP (occurrence: JP)
  Receive Date: 20211103
  Receipt Date: 20211108
  Transmission Date: 20220304
  Serious: Yes (Other)
  Sender: FDA-Public Use
  Company Number: JP-Teva Takeda Yakuhin-2021-JP-005309J

PATIENT

DRUGS (1)
  1. LANSOPRAZOLE [Suspect]
     Active Substance: LANSOPRAZOLE
     Indication: Gastric haemorrhage
     Dosage: DOSAGE IS UNKNOWN
     Route: 042

REACTIONS (1)
  - Gastric haemorrhage [Unknown]
